FAERS Safety Report 9943415 (Version 2)
Quarter: 2014Q1

REPORT INFORMATION
  Report Type: Report from Study
  Country: US (occurrence: US)
  Receive Date: 20140303
  Receipt Date: 20140303
  Transmission Date: 20141002
  Serious: No
  Sender: FDA-Public Use
  Company Number: US-ABBVIE-09P-163-0570523-00

PATIENT
  Age: 42 Year
  Sex: Female
  Weight: 79.45 kg

DRUGS (3)
  1. HUMIRA 40 MG/ 0.8 ML PRE-FILLED SYRINGE [Suspect]
     Indication: CROHN^S DISEASE
     Route: 058
  2. HUMIRA 40 MG/ 0.8 ML PRE-FILLED SYRINGE [Suspect]
     Indication: CROHN^S DISEASE
     Route: 058
  3. COLAZAL [Concomitant]
     Indication: COLITIS ULCERATIVE

REACTIONS (7)
  - Local swelling [Recovered/Resolved]
  - Joint swelling [Not Recovered/Not Resolved]
  - Dyspnoea [Recovered/Resolved]
  - Feeling abnormal [Unknown]
  - Local swelling [Recovered/Resolved]
  - Fluid retention [Recovered/Resolved]
  - Colitis ulcerative [Not Recovered/Not Resolved]
